FAERS Safety Report 12395471 (Version 1)
Quarter: 2016Q2

REPORT INFORMATION
  Report Type: Spontaneous
  Country: US (occurrence: US)
  Receive Date: 20160523
  Receipt Date: 20160523
  Transmission Date: 20160815
  Serious: No
  Sender: FDA-Public Use
  Company Number: US-ENDO PHARMACEUTICALS INC.-2015-004494

PATIENT
  Sex: Male
  Weight: 44.5 kg

DRUGS (1)
  1. SUPPRELIN LA [Suspect]
     Active Substance: HISTRELIN ACETATE
     Indication: PRECOCIOUS PUBERTY
     Route: 065
     Dates: start: 20150108, end: 20150108

REACTIONS (2)
  - Drug ineffective [Unknown]
  - Device breakage [Unknown]

NARRATIVE: CASE EVENT DATE: 2015
